FAERS Safety Report 12423366 (Version 1)
Quarter: 2016Q2

REPORT INFORMATION
  Report Type: Spontaneous
  Country: US (occurrence: US)
  Receive Date: 20160601
  Receipt Date: 20160601
  Transmission Date: 20160815
  Serious: No
  Sender: FDA-Public Use
  Company Number: US-NOVEN PHARMACEUTICALS, INC.-US2016000229

PATIENT

DRUGS (1)
  1. DAYTRANA [Suspect]
     Active Substance: METHYLPHENIDATE
     Indication: ATTENTION DEFICIT/HYPERACTIVITY DISORDER
     Dosage: 30 MG, UNKNOWN
     Route: 062
     Dates: start: 20160209

REACTIONS (5)
  - Incorrect drug administration duration [Recovered/Resolved]
  - Dizziness [Unknown]
  - Respiratory rate increased [Unknown]
  - Dyskinesia [Unknown]
  - Bruxism [Unknown]

NARRATIVE: CASE EVENT DATE: 20160209
